FAERS Safety Report 5139681-6 (Version None)
Quarter: 2006Q4

REPORT INFORMATION
  Report Type: 
  Country: None (occurrence: None)
  Receive Date: 20061024
  Receipt Date: 20061010
  Transmission Date: 20070319
  Serious: Yes (Death)
  Sender: FDA-Public Use
  Company Number: A-CH2006-13209

PATIENT
  Age: 59 Year
  Sex: Male

DRUGS (6)
  1. TRACLEER [Suspect]
     Indication: PULMONARY HYPERTENSION
     Dosage: 62.5 MG, ORAL
     Route: 048
     Dates: start: 20041101, end: 20060918
  2. FOSINOPRIL SODIUM [Concomitant]
  3. EUCARDIC (CARVEDILOL) [Concomitant]
  4. ACENOCOUMAROL (ACENOCOUMAROL) [Concomitant]
  5. SILDENAFIL [Concomitant]
  6. FUROSEMIDE [Concomitant]

REACTIONS (2)
  - CONDITION AGGRAVATED [None]
  - PULMONARY HYPERTENSION [None]
